FAERS Safety Report 23164425 (Version 1)
Quarter: 2023Q4

REPORT INFORMATION
  Report Type: Spontaneous
  Country: US (occurrence: US)
  Receive Date: 20231109
  Receipt Date: 20231109
  Transmission Date: 20240109
  Serious: No
  Sender: FDA-Public Use
  Company Number: US-INSMED, INC.-2023-03197-US

PATIENT
  Age: 51 Year
  Sex: Female

DRUGS (3)
  1. ARIKAYCE [Suspect]
     Active Substance: AMIKACIN
     Indication: Mycobacterium abscessus infection
     Dosage: 590 MILLIGRAM
     Route: 055
  2. MEROPENEM [Concomitant]
     Active Substance: MEROPENEM
     Indication: Mycobacterium abscessus infection
     Dosage: UNK
     Route: 065
  3. CEFTAROLINE [Concomitant]
     Active Substance: CEFTAROLINE
     Indication: Mycobacterium abscessus infection
     Dosage: UNK
     Route: 065

REACTIONS (2)
  - Off label use [Unknown]
  - Drug ineffective [Unknown]
